FAERS Safety Report 6735310-6 (Version None)
Quarter: 2010Q2

REPORT INFORMATION
  Report Type: 
  Country: None (occurrence: None)
  Receive Date: 20100520
  Receipt Date: 20100520
  Transmission Date: 20101027
  Serious: Yes (Other)
  Sender: FDA-Public Use
  Company Number: None

PATIENT
  Sex: Female
  Weight: 24.9478 kg

DRUGS (1)
  1. LEVOTHYROXINE SODIUM [Suspect]
     Dosage: 100MCG ONCE DAILY PO
     Route: 048
     Dates: start: 20060101

REACTIONS (6)
  - ALOPECIA [None]
  - ASTHENIA [None]
  - BONE PAIN [None]
  - DYSPHAGIA [None]
  - PAIN [None]
  - PRODUCT SUBSTITUTION ISSUE [None]
